FAERS Safety Report 23691552 (Version 4)
Quarter: 2024Q4

REPORT INFORMATION
  Report Type: Spontaneous
  Country: US (occurrence: US)
  Receive Date: 20240401
  Receipt Date: 20241216
  Transmission Date: 20250115
  Serious: No
  Sender: BRISTOL-MYERS SQUIBB COMPANY
  Company Number: US-BRISTOL-MYERS SQUIBB COMPANY-2024-051446

PATIENT
  Age: 66 Year
  Sex: Male
  Weight: 94.35 kg

DRUGS (1)
  1. POMALYST [Suspect]
     Active Substance: POMALIDOMIDE
     Indication: Plasma cell myeloma
     Route: 048
     Dates: start: 202401

REACTIONS (7)
  - Fatigue [Not Recovered/Not Resolved]
  - Dizziness [Unknown]
  - Rash [Unknown]
  - Dry skin [Unknown]
  - Muscle spasms [Unknown]
  - Diplopia [Unknown]
  - Asthenia [Not Recovered/Not Resolved]
